FAERS Safety Report 5838789-7 (Version None)
Quarter: 2008Q3

REPORT INFORMATION
  Report Type: 
  Country: None (occurrence: None)
  Receive Date: 20080804
  Receipt Date: 20080516
  Transmission Date: 20090109
  Serious: Yes (Hospitalization)
  Sender: FDA-Public Use
  Company Number: 2008-BP-05107RO

PATIENT
  Age: 60 Year
  Sex: Male
  Weight: 80 kg

DRUGS (9)
  1. OXCARBAZEPINE [Suspect]
     Indication: CONVULSION
     Dosage: 1800 MG (300 MG,3 TABLETS BID),PO
     Route: 048
     Dates: start: 20080401
  2. INSULIN (INSULIN) [Concomitant]
  3. A LOT OF MEDICATIONS FOR BP(ALL OTHER THERAPEUTIC PRODUCTS) [Concomitant]
  4. CARVEDILOL [Concomitant]
  5. LOTREL (LOTREL /01289101/) [Concomitant]
  6. ATENOLOL [Concomitant]
  7. VYTORIN [Concomitant]
  8. SPIRONOLACTONE [Concomitant]
  9. TEKTURRA (ALL OTHER THERAPEUTIC PRODUCTS) [Concomitant]

REACTIONS (3)
  - HEADACHE [None]
  - VERTIGO [None]
  - VOMITING [None]
